FAERS Safety Report 9441914 (Version 1)
Quarter: 2013Q3

REPORT INFORMATION
  Report Type: Spontaneous
  Country: US (occurrence: US)
  Receive Date: 20130806
  Receipt Date: 20130806
  Transmission Date: 20140515
  Serious: No
  Sender: FDA-Public Use
  Company Number: US-JNJFOC-20130708604

PATIENT
  Age: 19 Year
  Sex: Male
  Weight: 81.65 kg

DRUGS (1)
  1. INVEGA [Suspect]
     Indication: BODY DYSMORPHIC DISORDER
     Route: 048
     Dates: start: 201301, end: 201302

REACTIONS (3)
  - Gynaecomastia [Not Recovered/Not Resolved]
  - Body dysmorphic disorder [Unknown]
  - Off label use [Recovered/Resolved]
